FAERS Safety Report 23157771 (Version 1)
Quarter: 2023Q4

REPORT INFORMATION
  Report Type: Other
  Country: DE (occurrence: DE)
  Receive Date: 20231108
  Receipt Date: 20231108
  Transmission Date: 20240110
  Serious: No
  Sender: FDA-Public Use
  Company Number: None

PATIENT
  Age: 76 Year
  Sex: Male
  Weight: 72 kg

DRUGS (6)
  1. ELIGARD [Suspect]
     Active Substance: LEUPROLIDE ACETATE
     Indication: Prostate cancer
     Dosage: 22.5 MILLIGRAM, Q 3 MONTH
     Dates: start: 20211106
  2. ELIGARD [Suspect]
     Active Substance: LEUPROLIDE ACETATE
     Indication: Prostate cancer
     Dosage: UNK
  3. XTANDI [Suspect]
     Active Substance: ENZALUTAMIDE
     Indication: Prostate cancer
     Dosage: 4X/TAG
     Dates: start: 20211106
  4. METOPROLOL [Concomitant]
     Active Substance: METOPROLOL
     Indication: Cerebrovascular accident
     Dosage: 1-0-0
     Dates: start: 2008
  5. SIMVASTATIN [Concomitant]
     Active Substance: SIMVASTATIN
     Indication: Cerebrovascular accident
     Dosage: 1-0-0
     Dates: start: 2008
  6. ASPIRIN [Concomitant]
     Active Substance: ASPIRIN
     Indication: Cerebrovascular accident
     Dosage: 1-0-0
     Dates: start: 2008

REACTIONS (2)
  - Hypoaesthesia [Not Recovered/Not Resolved]
  - Gait disturbance [Not Recovered/Not Resolved]

NARRATIVE: CASE EVENT DATE: 20230101
